FAERS Safety Report 20094769 (Version 1)
Quarter: 2021Q4

REPORT INFORMATION
  Report Type: Spontaneous
  Country: US (occurrence: None)
  Receive Date: 20211122
  Receipt Date: 20211122
  Transmission Date: 20220303
  Serious: Yes (Other)
  Sender: FDA-Public Use
  Company Number: US-ROCHE-2954865

PATIENT
  Sex: Female

DRUGS (1)
  1. OCREVUS [Suspect]
     Active Substance: OCRELIZUMAB
     Indication: Product used for unknown indication
     Route: 065

REACTIONS (6)
  - Multiple sclerosis relapse [Unknown]
  - Bradykinesia [Unknown]
  - Drug ineffective [Unknown]
  - Psychomotor skills impaired [Unknown]
  - Mobility decreased [Unknown]
  - Ill-defined disorder [Unknown]
